FAERS Safety Report 10176688 (Version 1)
Quarter: 2014Q2

REPORT INFORMATION
  Report Type: Report from Study
  Country: AR (occurrence: AR)
  Receive Date: 20140516
  Receipt Date: 20140516
  Transmission Date: 20141212
  Serious: Yes (Disabling)
  Sender: FDA-Public Use
  Company Number: AR-ABBVIE-14P-007-1236054-00

PATIENT
  Age: 45 Year
  Sex: Female

DRUGS (1)
  1. HUMIRA [Suspect]
     Indication: RHEUMATOID ARTHRITIS

REACTIONS (3)
  - Intervertebral disc protrusion [Recovering/Resolving]
  - Limb immobilisation [Recovering/Resolving]
  - Fall [Unknown]
